FAERS Safety Report 9442788 (Version 1)
Quarter: 2013Q3

REPORT INFORMATION
  Report Type: Spontaneous
  Country: US (occurrence: US)
  Receive Date: 20130806
  Receipt Date: 20130806
  Transmission Date: 20140515
  Serious: No
  Sender: FDA-Public Use
  Company Number: US-ABBOTT-13P-163-1094898-00

PATIENT
  Age: 45 Year
  Sex: Female
  Weight: 96.25 kg

DRUGS (8)
  1. DEPAKOTE ER [Suspect]
     Indication: MANIA
     Dosage: AT BEDTIME
     Dates: start: 20130416
  2. LAMOTRIGINE [Concomitant]
     Indication: MANIA
  3. TRAZODONE [Concomitant]
     Indication: INSOMNIA
  4. CLONAZEPAM [Concomitant]
     Indication: ANXIETY
  5. OMEPRAZOLE [Concomitant]
     Indication: GASTROOESOPHAGEAL REFLUX DISEASE
  6. ZYRTEC [Concomitant]
     Indication: HYPERSENSITIVITY
  7. LEVOTHYROXINE [Concomitant]
     Indication: HYPOTHYROIDISM
  8. MULTIVITAMIN [Concomitant]
     Indication: PRODUCT USED FOR UNKNOWN INDICATION

REACTIONS (7)
  - Muscle spasms [Not Recovered/Not Resolved]
  - Myalgia [Not Recovered/Not Resolved]
  - Dizziness [Not Recovered/Not Resolved]
  - Asthenia [Not Recovered/Not Resolved]
  - Palpitations [Not Recovered/Not Resolved]
  - Urine output decreased [Not Recovered/Not Resolved]
  - Blood sodium increased [Unknown]
